FAERS Safety Report 15120015 (Version 1)
Quarter: 2018Q3

REPORT INFORMATION
  Report Type: Spontaneous
  Country: FR (occurrence: FR)
  Receive Date: 20180709
  Receipt Date: 20180709
  Transmission Date: 20181010
  Serious: Yes (Other)
  Sender: FDA-Public Use
  Company Number: PHHY2018FR032923

PATIENT
  Sex: Male
  Weight: 71 kg

DRUGS (1)
  1. TRILEPTAL [Suspect]
     Active Substance: OXCARBAZEPINE
     Indication: EPILEPSY
     Dosage: 300 MG, BID
     Route: 048

REACTIONS (8)
  - Rectal injury [Unknown]
  - Stress [Unknown]
  - Limb injury [Unknown]
  - Muscle fatigue [Unknown]
  - Dyspepsia [Unknown]
  - Suicidal ideation [Unknown]
  - Weight increased [Unknown]
  - Depression [Unknown]
